FAERS Safety Report 12207905 (Version 1)
Quarter: 2016Q1

REPORT INFORMATION
  Report Type: Report from Study
  Country: BR (occurrence: BR)
  Receive Date: 20160324
  Receipt Date: 20160324
  Transmission Date: 20160526
  Serious: Yes (Other)
  Sender: FDA-Public Use
  Company Number: PHHY2015BR000860

PATIENT
  Age: 46 Year
  Sex: Female
  Weight: 65 kg

DRUGS (6)
  1. AFINITOR [Suspect]
     Active Substance: EVEROLIMUS
     Indication: BREAST CANCER METASTATIC
     Dosage: 10 MG, QD
     Route: 065
     Dates: start: 201407, end: 201410
  2. AFINITOR [Suspect]
     Active Substance: EVEROLIMUS
     Dosage: 5 MG, QD
     Route: 048
     Dates: start: 201411
  3. AROMASIN [Suspect]
     Active Substance: EXEMESTANE
     Indication: METASTASES TO BONE
  4. AROMASIN [Suspect]
     Active Substance: EXEMESTANE
     Indication: BREAST CANCER METASTATIC
     Dosage: 10 MG, QHS
     Route: 048
     Dates: start: 201407
  5. GLIFAGE [Concomitant]
     Active Substance: METFORMIN HYDROCHLORIDE
     Indication: DIABETES MELLITUS
     Dosage: 500 MG, QD
     Route: 048
  6. PURAN [Concomitant]
     Active Substance: LEVOTHYROXINE SODIUM
     Indication: AUTOIMMUNE THYROIDITIS
     Dosage: 1 DF, QD
     Route: 048

REACTIONS (14)
  - Haemorrhage [Not Recovered/Not Resolved]
  - Mouth injury [Unknown]
  - Nail disorder [Not Recovered/Not Resolved]
  - Fracture [Unknown]
  - Decreased immune responsiveness [Recovered/Resolved]
  - Onychoclasis [Recovered/Resolved]
  - Pain [Not Recovered/Not Resolved]
  - Nail avulsion [Unknown]
  - Headache [Unknown]
  - Malignant neoplasm progression [Unknown]
  - Aphthous ulcer [Recovered/Resolved]
  - Onychalgia [Unknown]
  - Fatigue [Not Recovered/Not Resolved]
  - Oral herpes [Recovering/Resolving]

NARRATIVE: CASE EVENT DATE: 201409
